FAERS Safety Report 9057276 (Version 1)
Quarter: 2013Q1

REPORT INFORMATION
  Report Type: Report from Study
  Country: JP (occurrence: JP)
  Receive Date: 20130131
  Receipt Date: 20130131
  Transmission Date: 20140127
  Serious: Yes (Other)
  Sender: FDA-Public Use
  Company Number: JP-GLAXOSMITHKLINE-B0860325A

PATIENT
  Age: 61 None
  Sex: Female
  Weight: 55 kg

DRUGS (6)
  1. TYKERB [Suspect]
     Indication: BREAST CANCER
     Route: 048
     Dates: start: 20100105, end: 20100608
  2. XELODA [Suspect]
     Route: 048
     Dates: start: 20100105, end: 20100413
  3. XELODA [Suspect]
     Route: 048
     Dates: start: 20100427, end: 20100608
  4. PROPETO [Concomitant]
     Indication: PROPHYLAXIS
     Dates: start: 20100105, end: 20100427
  5. HIRUDOID [Concomitant]
     Indication: PROPHYLAXIS
     Dates: start: 20100105, end: 20100427
  6. MYSER [Concomitant]
     Indication: PROPHYLAXIS
     Dates: start: 20100105, end: 20100427

REACTIONS (4)
  - Pulmonary hypertension [Not Recovered/Not Resolved]
  - Skin fissures [Recovered/Resolved]
  - Dry skin [Recovered/Resolved]
  - Red blood cell count decreased [Recovering/Resolving]
